FAERS Safety Report 6629063-X (Version None)
Quarter: 2010Q1

REPORT INFORMATION
  Report Type: 
  Country: None (occurrence: None)
  Receive Date: 20100311
  Receipt Date: 20090813
  Transmission Date: 20100710
  Serious: No
  Sender: FDA-Public Use
  Company Number: US-BIOGENIDEC-2009BI025506

PATIENT
  Age: 40 Year
  Sex: Female

DRUGS (2)
  1. AVONEX [Suspect]
     Indication: MULTIPLE SCLEROSIS
     Route: 030
     Dates: start: 20080601, end: 20090401
  2. AVONEX [Suspect]
     Route: 030
     Dates: start: 20090601

REACTIONS (4)
  - GRANULOCYTE COUNT DECREASED [None]
  - PSORIATIC ARTHROPATHY [None]
  - STOMATITIS [None]
  - WHITE BLOOD CELL COUNT DECREASED [None]
